FAERS Safety Report 10263606 (Version 2)
Quarter: 2014Q2

REPORT INFORMATION
  Report Type: Report from Study
  Country: US (occurrence: US)
  Receive Date: 20140626
  Receipt Date: 20140626
  Transmission Date: 20141212
  Serious: Yes (Hospitalization, Other)
  Sender: FDA-Public Use
  Company Number: PHHY2013US061431

PATIENT
  Sex: Male
  Weight: 4.82 kg

DRUGS (17)
  1. RHUMAB-E25 [Suspect]
     Indication: URTICARIA
     Route: 064
     Dates: start: 20120919
  2. RHUMAB-E25 [Suspect]
     Route: 064
     Dates: start: 20121017
  3. RHUMAB-E25 [Suspect]
     Route: 064
     Dates: start: 20130123
  4. RHUMAB-E25 [Suspect]
     Route: 064
     Dates: start: 20130410
  5. RHUMAB-E25 [Suspect]
     Dosage: 225 MG, 1 IN 2 M (MATERNAL DOSE)
     Route: 063
     Dates: start: 20130619
  6. RHUMAB-E25 [Suspect]
     Dosage: 225 MG, 1 IN 2 M (MATERNAL DOSE)
     Route: 063
     Dates: start: 20130821
  7. RHUMAB-E25 [Suspect]
     Dosage: 225 MG, 1 IN 2 M (MATERNAL DOSE)
     Route: 063
     Dates: start: 20131016
  8. RHUMAB-E25 [Suspect]
     Dosage: 225 MG, 1 IN 2 M (MATERNAL DOSE)
     Route: 063
     Dates: start: 20131204
  9. RHUMAB-E25 [Suspect]
     Dosage: 225 MG, 1 IN 2 M (MATERNAL DOSE)
     Route: 063
     Dates: start: 20140122
  10. RHUMAB-E25 [Suspect]
     Dosage: 225 MG, 1 IN 2 M (MATERNAL DOSE)
     Route: 063
     Dates: start: 20140319
  11. RHUMAB-E25 [Suspect]
     Dosage: 225 MG, 1 IN 2 M (MATERNAL DOSE)
     Route: 063
     Dates: start: 20140430
  12. RHUMAB-E25 [Suspect]
     Dosage: 225 MG, 1 IN 2 M (MATERNAL DOSE)
     Route: 063
     Dates: start: 20140611
  13. CERVIDIL [Suspect]
     Indication: LABOUR INDUCTION
     Route: 064
  14. LEVOCETIRIZINE [Suspect]
     Dosage: 1 DF, QD
     Route: 064
  15. PATANASE [Suspect]
     Route: 064
  16. PATADAY [Suspect]
     Route: 064
  17. VITAMIN D [Suspect]

REACTIONS (7)
  - Candida infection [Unknown]
  - Miliaria [Unknown]
  - Dermatitis diaper [Unknown]
  - Foetal heart rate deceleration abnormality [Recovered/Resolved]
  - Postmature baby [Unknown]
  - Dacryostenosis acquired [Unknown]
  - Foetal exposure during pregnancy [Unknown]
